FAERS Safety Report 5528156-8 (Version None)
Quarter: 2007Q4

REPORT INFORMATION
  Report Type: 
  Country: None (occurrence: None)
  Receive Date: 20071128
  Receipt Date: 20071116
  Transmission Date: 20080405
  Serious: Yes (Death)
  Sender: FDA-Public Use
  Company Number: JP-PFIZER INC-2007097131

PATIENT
  Age: 75 Year
  Sex: Female

DRUGS (6)
  1. ZOLOFT [Suspect]
     Indication: DEPRESSION
     Dosage: DAILY DOSE:50MG
     Route: 048
     Dates: start: 20070915, end: 20071110
  2. AMLODIN [Concomitant]
     Route: 048
  3. EVISTA [Concomitant]
     Route: 048
  4. GASTER [Concomitant]
     Route: 048
  5. MYSLEE [Concomitant]
     Route: 048
  6. INFREE S [Concomitant]
     Route: 048

REACTIONS (1)
  - DEATH [None]
